FAERS Safety Report 7417457-4 (Version None)
Quarter: 2011Q2

REPORT INFORMATION
  Report Type: 
  Country: None (occurrence: None)
  Receive Date: 20110415
  Receipt Date: 20110408
  Transmission Date: 20111010
  Serious: Yes (Other)
  Sender: FDA-Public Use
  Company Number: JP-SANOFI-AVENTIS-2011SA021901

PATIENT
  Sex: Female
  Weight: 80 kg

DRUGS (13)
  1. ACTOS [Concomitant]
     Indication: DIABETES MELLITUS
     Dosage: FROM 4 WEEKS BEFORE THE ADMINISTRATION OF INSULIN GLULISINE.
     Route: 048
  2. APIDRA [Suspect]
     Indication: DIABETES MELLITUS
     Dosage: 18-14-18 PER MORNING, NOON, EVENING.
     Route: 058
     Dates: start: 20101008
  3. PERSANTIN [Concomitant]
     Dosage: IT WAS STARTED BEFORE THE ADMINISTRATION OF INSULIN GLULISINE.
     Route: 048
  4. ADALAT CC [Concomitant]
     Dosage: MORNING, IT WAS STARTED BEFORE THE ADMINISTRATION OF INSULIN GLULISINE.
     Route: 048
  5. LIPITOR [Concomitant]
     Dosage: IT WAS STARTED BEFORE THE ADMINISTRATION OF INSULIN GLULISINE.
     Route: 048
  6. EPADEL [Concomitant]
     Dosage: IT WAS STARTED BEFORE THE ADMINISTRATION OF INSULIN GLULISINE.
     Route: 048
  7. ALLOPURINOL [Concomitant]
     Dosage: IT WAS STARTED BEFORE THE ADMINISTRATION OF INSULIN GLULISINE.
     Route: 048
  8. NOVORAPID [Concomitant]
     Indication: DIABETES MELLITUS
     Dosage: 18-14-18 PER MORNING, NOON, EVENING.FROM 4 WEEKS BEFORE THE ADMINISTRATION OF INSULIN GLULISINE.
     Route: 058
     Dates: end: 20101007
  9. AVAPRO [Concomitant]
     Dosage: IT WAS STARTED BEFORE THE ADMINISTRATION OF INSULIN GLULISINE.
     Route: 048
  10. DOXAZOSIN MESYLATE [Concomitant]
     Dosage: IT WAS STARTED BEFORE THE ADMINISTRATION OF INSULIN GLULISINE.
     Route: 048
  11. FLUITRAN [Concomitant]
     Dosage: IT WAS STARTED BEFORE THE ADMINISTRATION OF INSULIN GLULISINE.
     Route: 048
  12. LASIX [Concomitant]
     Dosage: IT WAS STARTED BEFORE THE ADMINISTRATION OF INSULIN GLULISINE.
     Route: 048
  13. ADALAT CC [Concomitant]
     Dosage: EVENING
     Route: 048

REACTIONS (1)
  - CARDIAC FAILURE [None]
